FAERS Safety Report 11789918 (Version 2)
Quarter: 2016Q4

REPORT INFORMATION
  Report Type: Report from Study
  Country: JP (occurrence: JP)
  Receive Date: 20151201
  Receipt Date: 20161206
  Transmission Date: 20170206
  Serious: Yes (Hospitalization, Other)
  Sender: FDA-Public Use
  Company Number: JP-ASTELLAS-2010JP001560

PATIENT
  Age: 21 Year
  Sex: Female
  Weight: 45 kg

DRUGS (192)
  1. TACROLIMUS. [Suspect]
     Active Substance: TACROLIMUS
     Route: 048
     Dates: start: 20090218, end: 20111018
  2. PREDNISOLONE. [Suspect]
     Active Substance: PREDNISOLONE
     Route: 048
     Dates: start: 20090219, end: 20090408
  3. PREDNISOLONE. [Suspect]
     Active Substance: PREDNISOLONE
     Route: 048
     Dates: start: 20110112, end: 20110524
  4. PREDNISOLONE. [Suspect]
     Active Substance: PREDNISOLONE
     Route: 048
     Dates: start: 20120419, end: 20120508
  5. PREDNISOLONE. [Suspect]
     Active Substance: PREDNISOLONE
     Route: 048
     Dates: start: 20141126, end: 20150126
  6. METHYLPREDNISOLONE SODIUM SUCCINATE. [Suspect]
     Active Substance: METHYLPREDNISOLONE SODIUM SUCCINATE
     Route: 065
     Dates: start: 20120606, end: 20120606
  7. PERSANTINE [Suspect]
     Active Substance: DIPYRIDAMOLE
     Indication: LUPUS NEPHRITIS
     Route: 048
     Dates: start: 20120811
  8. DIOVAN [Concomitant]
     Active Substance: VALSARTAN
     Route: 048
     Dates: start: 20120808, end: 20130802
  9. ZANTAC [Concomitant]
     Active Substance: RANITIDINE HYDROCHLORIDE
     Indication: PROPHYLAXIS
     Route: 048
     Dates: end: 20120715
  10. FOSAMAC [Concomitant]
     Active Substance: ALENDRONATE SODIUM
     Route: 048
     Dates: start: 20100512, end: 20111018
  11. LOXONIN [Concomitant]
     Active Substance: LOXOPROFEN SODIUM
     Indication: PRODUCT USED FOR UNKNOWN INDICATION
     Route: 048
     Dates: start: 20090218, end: 20090407
  12. ISODINE [Concomitant]
     Active Substance: POVIDONE-IODINE
     Indication: PROPHYLAXIS
     Dosage: ADEQUATE DOSE DAILY
     Route: 061
     Dates: start: 20110921, end: 20120131
  13. MYTEAR                             /00629201/ [Concomitant]
     Indication: SYSTEMIC LUPUS ERYTHEMATOSUS
     Dosage: UNK UNK, 4 TIMES DAILY
     Route: 047
     Dates: start: 20111221, end: 20120131
  14. BONOTEO [Concomitant]
     Active Substance: MINODRONIC ACID
     Indication: OSTEONECROSIS
     Route: 048
     Dates: start: 20121004, end: 20130312
  15. DIQUAS [Concomitant]
     Active Substance: DIQUAFOSOL TETRASODIUM
     Indication: SYSTEMIC LUPUS ERYTHEMATOSUS
     Dosage: UNK UNK, THRICE DAILY
     Route: 047
     Dates: start: 20120509, end: 20120605
  16. HANP [Concomitant]
     Active Substance: CARPERITIDE
     Indication: LUPUS NEPHRITIS
     Route: 065
     Dates: start: 20120719, end: 20120727
  17. GLUCOSE [Concomitant]
     Active Substance: DEXTROSE
     Indication: PRODUCT USED FOR UNKNOWN INDICATION
     Route: 065
     Dates: start: 20120725, end: 20120729
  18. FLUITRAN [Concomitant]
     Active Substance: TRICHLORMETHIAZIDE
     Indication: LUPUS NEPHRITIS
     Route: 048
     Dates: start: 20120901, end: 20120911
  19. ELDECALCITOL [Concomitant]
     Active Substance: ELDECALCITOL
     Indication: OSTEONECROSIS
     Dosage: 0.75 ?G, ONCE DAILY
     Route: 065
     Dates: start: 20130703, end: 20141126
  20. TACROLIMUS. [Suspect]
     Active Substance: TACROLIMUS
     Indication: LUPUS NEPHRITIS
     Route: 048
     Dates: start: 20081105, end: 20081202
  21. PREDNISOLONE. [Suspect]
     Active Substance: PREDNISOLONE
     Indication: LUPUS NEPHRITIS
     Route: 048
     Dates: end: 20090218
  22. PREDNISOLONE. [Suspect]
     Active Substance: PREDNISOLONE
     Route: 048
     Dates: start: 20110525, end: 20120418
  23. PREDNISOLONE. [Suspect]
     Active Substance: PREDNISOLONE
     Route: 048
     Dates: start: 20140226, end: 20140325
  24. PREDNISOLONE. [Suspect]
     Active Substance: PREDNISOLONE
     Route: 048
     Dates: start: 20140423, end: 20140617
  25. METHYLPREDNISOLONE SODIUM SUCCINATE. [Suspect]
     Active Substance: METHYLPREDNISOLONE SODIUM SUCCINATE
     Route: 065
     Dates: start: 20120825, end: 20120827
  26. PREDNISOLONE SODIUM SUCCINATE [Suspect]
     Active Substance: PREDNISOLONE SODIUM SUCCINATE
     Route: 065
     Dates: start: 20120718, end: 20120723
  27. FERROMIA [Concomitant]
     Active Substance: FERROUS CITRATE
     Route: 048
     Dates: start: 20130206, end: 20130312
  28. HYALEIN [Concomitant]
     Active Substance: HYALURONATE SODIUM
     Dosage: UNK UNK, THRICE DAILY
     Route: 047
     Dates: start: 20110707, end: 20111220
  29. EVOXAC [Concomitant]
     Active Substance: CEVIMELINE HYDROCHLORIDE
     Indication: SYSTEMIC LUPUS ERYTHEMATOSUS
     Dosage: UNK UNK, UNKNOWN FREQ.
     Route: 048
     Dates: start: 20100901, end: 20101005
  30. DIART [Concomitant]
     Active Substance: AZOSEMIDE
     Indication: LUPUS NEPHRITIS
     Route: 048
     Dates: start: 20120509, end: 20120715
  31. PENTCILLIN [Concomitant]
     Active Substance: PIPERACILLIN SODIUM
     Route: 065
     Dates: start: 20120825, end: 20120825
  32. LASIX [Concomitant]
     Active Substance: FUROSEMIDE
     Indication: LUPUS NEPHRITIS
     Route: 065
     Dates: start: 20120719, end: 20120719
  33. LASIX [Concomitant]
     Active Substance: FUROSEMIDE
     Route: 048
     Dates: start: 20120904, end: 20120904
  34. NEOAMIYU [Concomitant]
     Active Substance: AMINO ACIDS
     Indication: PRODUCT USED FOR UNKNOWN INDICATION
     Route: 065
     Dates: start: 20120725, end: 20120729
  35. ASPARA K [Concomitant]
     Active Substance: POTASSIUM ASPARTATE
     Route: 048
     Dates: start: 20120830, end: 20130205
  36. LIPITOR [Concomitant]
     Active Substance: ATORVASTATIN CALCIUM
     Indication: HYPERLIPIDAEMIA
     Route: 048
     Dates: start: 20120807, end: 20160822
  37. ADONA                              /00056903/ [Concomitant]
     Active Substance: CARBAZOCHROME SODIUM SULFONATE
     Indication: MENORRHAGIA
     Route: 048
     Dates: start: 20120809, end: 20120812
  38. ADONA                              /00056903/ [Concomitant]
     Active Substance: CARBAZOCHROME SODIUM SULFONATE
     Indication: HAEMORRHAGE PROPHYLAXIS
     Route: 048
     Dates: start: 20121004, end: 20121106
  39. ALFAROL [Concomitant]
     Active Substance: ALFACALCIDOL
     Indication: PROPHYLAXIS
     Route: 048
     Dates: start: 20120811, end: 20121003
  40. TANATRIL [Concomitant]
     Active Substance: IMIDAPRIL
     Route: 048
     Dates: start: 20120906, end: 20160201
  41. VENOGLOBULIN [Concomitant]
     Active Substance: HUMAN IMMUNOGLOBULIN G
     Indication: LUPUS NEPHRITIS
     Route: 065
     Dates: start: 20120825, end: 20120827
  42. FEBURIC [Concomitant]
     Active Substance: FEBUXOSTAT
     Indication: HYPERURICAEMIA
     Route: 048
     Dates: start: 20121017, end: 20140129
  43. PRALIA [Concomitant]
     Active Substance: DENOSUMAB
     Indication: OSTEONECROSIS
     Route: 058
     Dates: start: 20141126
  44. TACROLIMUS. [Suspect]
     Active Substance: TACROLIMUS
     Route: 048
     Dates: start: 20081203, end: 20090113
  45. PREDNISOLONE. [Suspect]
     Active Substance: PREDNISOLONE
     Route: 048
     Dates: start: 20121004, end: 20121016
  46. PREDNISOLONE. [Suspect]
     Active Substance: PREDNISOLONE
     Route: 048
     Dates: start: 20121205, end: 20130115
  47. PREDNISOLONE. [Suspect]
     Active Substance: PREDNISOLONE
     Route: 048
     Dates: start: 20140206, end: 20140225
  48. METHYLPREDNISOLONE SODIUM SUCCINATE. [Suspect]
     Active Substance: METHYLPREDNISOLONE SODIUM SUCCINATE
     Route: 065
     Dates: start: 20120524, end: 20120524
  49. PREDNISOLONE SODIUM SUCCINATE [Suspect]
     Active Substance: PREDNISOLONE SODIUM SUCCINATE
     Indication: LUPUS NEPHRITIS
     Route: 065
     Dates: start: 20120716, end: 20120717
  50. KAKKON-TO [Concomitant]
     Active Substance: HERBS\ROOTS
     Indication: NASOPHARYNGITIS
     Route: 048
     Dates: start: 20081105, end: 20081110
  51. KAKKON-TO [Concomitant]
     Active Substance: HERBS\ROOTS
     Route: 048
     Dates: start: 20110209, end: 20110213
  52. FERROMIA [Concomitant]
     Active Substance: FERROUS CITRATE
     Indication: IRON DEFICIENCY ANAEMIA
     Route: 048
     Dates: start: 20120731, end: 20121016
  53. BREDININ [Concomitant]
     Active Substance: MIZORIBINE
     Route: 048
     Dates: start: 20120814, end: 20120820
  54. EVOXAC [Concomitant]
     Active Substance: CEVIMELINE HYDROCHLORIDE
     Indication: SJOGREN^S SYNDROME
  55. MIYA-BM [Concomitant]
     Active Substance: CLOSTRIDIUM BUTYRICUM SPORES STRAIN M-55
     Indication: PROPHYLAXIS
     Route: 048
     Dates: start: 20110209, end: 20110213
  56. RINDERON V [Concomitant]
     Active Substance: BETAMETHASONE VALERATE
     Indication: OTITIS EXTERNA
     Dosage: 6 TO 8 DROPS DAILY
     Route: 001
     Dates: start: 20110309, end: 20110413
  57. DIART [Concomitant]
     Active Substance: AZOSEMIDE
     Route: 048
     Dates: start: 20121017, end: 20121106
  58. DIART [Concomitant]
     Active Substance: AZOSEMIDE
     Route: 048
     Dates: start: 20121107, end: 20130205
  59. HYALEIN MINI [Concomitant]
     Indication: SYSTEMIC LUPUS ERYTHEMATOSUS
     Dosage: UNK UNK, THRICE DAILY
     Route: 047
     Dates: start: 20120509, end: 20120605
  60. LASIX [Concomitant]
     Active Substance: FUROSEMIDE
     Route: 065
     Dates: start: 20120722, end: 20120722
  61. LASIX [Concomitant]
     Active Substance: FUROSEMIDE
     Route: 065
     Dates: start: 20120830, end: 20120902
  62. KENKETU GLOVENIN-I [Concomitant]
     Active Substance: HUMAN IMMUNOGLOBULIN G
     Indication: LUPUS NEPHRITIS
     Route: 065
     Dates: start: 20120722, end: 20120724
  63. ASPARA POTASSIUM [Concomitant]
     Active Substance: POTASSIUM ASPARTATE
     Indication: MINERAL SUPPLEMENTATION
     Route: 065
     Dates: start: 20120726, end: 20120729
  64. ASPARA POTASSIUM [Concomitant]
     Active Substance: POTASSIUM ASPARTATE
     Route: 065
     Dates: start: 20120825, end: 20120826
  65. NEXIUM [Concomitant]
     Active Substance: ESOMEPRAZOLE MAGNESIUM
     Indication: PROPHYLAXIS
     Route: 048
     Dates: start: 20120726, end: 20120824
  66. NU-LOTAN [Concomitant]
     Active Substance: LOSARTAN POTASSIUM
     Indication: LUPUS NEPHRITIS
     Route: 048
     Dates: start: 20120802, end: 20121003
  67. AMLODIN [Concomitant]
     Active Substance: AMLODIPINE BESYLATE
     Route: 048
     Dates: start: 20120817
  68. UROMITEXAN [Concomitant]
     Active Substance: MESNA
     Indication: PROPHYLAXIS
     Route: 065
     Dates: start: 20120809, end: 20120809
  69. MUCOSOLVAN [Concomitant]
     Active Substance: AMBROXOL HYDROCHLORIDE
     Indication: RHINITIS ALLERGIC
     Route: 048
     Dates: start: 20111019, end: 20111023
  70. ALLEGRA [Concomitant]
     Active Substance: FEXOFENADINE HYDROCHLORIDE
     Indication: RHINITIS ALLERGIC
     Route: 048
     Dates: start: 20111019, end: 20111023
  71. TACROLIMUS. [Suspect]
     Active Substance: TACROLIMUS
     Route: 048
     Dates: start: 20120907
  72. PREDNISOLONE. [Suspect]
     Active Substance: PREDNISOLONE
     Route: 048
     Dates: start: 20090514, end: 20090610
  73. PREDNISOLONE. [Suspect]
     Active Substance: PREDNISOLONE
     Route: 048
     Dates: start: 20120724, end: 20120820
  74. PREDNISOLONE. [Suspect]
     Active Substance: PREDNISOLONE
     Route: 048
     Dates: start: 20121017, end: 20121106
  75. PREDNISOLONE. [Suspect]
     Active Substance: PREDNISOLONE
     Route: 048
     Dates: start: 20140326, end: 20140422
  76. PL GRAN. [Concomitant]
     Active Substance: UNSPECIFIED INGREDIENT
     Indication: PRODUCT USED FOR UNKNOWN INDICATION
     Route: 048
     Dates: start: 20081105, end: 20081110
  77. FERROMIA [Concomitant]
     Active Substance: FERROUS CITRATE
     Route: 048
     Dates: start: 20130605, end: 20131105
  78. GASLON [Concomitant]
     Active Substance: IRSOGLADINE MALEATE
     Indication: PROPHYLAXIS
     Route: 048
     Dates: start: 20091104, end: 20120715
  79. CHLOMY [Concomitant]
     Active Substance: CHLORAMPHENICOL
     Indication: OTITIS EXTERNA
     Route: 061
     Dates: start: 20110309, end: 20110309
  80. TARIVID [Concomitant]
     Active Substance: OFLOXACIN
     Indication: OTITIS EXTERNA
     Dosage: 6 TO 8 DROPS DAILY
     Route: 001
     Dates: start: 20110309, end: 20110413
  81. BONOTEO [Concomitant]
     Active Substance: MINODRONIC ACID
     Route: 048
     Dates: start: 20130605, end: 20150410
  82. PERDIPINE [Concomitant]
     Active Substance: NICARDIPINE HYDROCHLORIDE
     Route: 065
     Dates: start: 20120716, end: 20120719
  83. VEEN D [Concomitant]
     Active Substance: CALCIUM CHLORIDE\DEXTROSE\POTASSIUM CHLORIDE\SODIUM ACETATE\SODIUM CHLORIDE
     Indication: PROPHYLAXIS AGAINST DEHYDRATION
     Route: 065
     Dates: start: 20120719, end: 20120719
  84. CEFAMEZIN ? [Concomitant]
     Route: 065
     Dates: start: 20120808, end: 20120808
  85. LASIX [Concomitant]
     Active Substance: FUROSEMIDE
     Route: 065
     Dates: start: 20120728, end: 20120728
  86. LASIX [Concomitant]
     Active Substance: FUROSEMIDE
     Route: 048
     Dates: start: 20120807, end: 20120812
  87. LASIX [Concomitant]
     Active Substance: FUROSEMIDE
     Route: 048
     Dates: start: 20120815, end: 20120815
  88. LASIX [Concomitant]
     Active Substance: FUROSEMIDE
     Route: 048
     Dates: start: 20120905, end: 20120907
  89. CATABON [Concomitant]
     Active Substance: DOPAMINE HYDROCHLORIDE
     Indication: PRODUCT USED FOR UNKNOWN INDICATION
     Route: 065
     Dates: start: 20120720, end: 20120721
  90. NEOLAMIN 3B                        /00520001/ [Concomitant]
     Route: 065
     Dates: start: 20120825, end: 20120826
  91. ADONA                              /00056903/ [Concomitant]
     Active Substance: CARBAZOCHROME SODIUM SULFONATE
     Indication: PURPURA
     Route: 048
     Dates: start: 20130904, end: 20131001
  92. TANATRIL [Concomitant]
     Active Substance: IMIDAPRIL
     Indication: LUPUS NEPHRITIS
     Route: 048
     Dates: start: 20120821, end: 20120905
  93. BAKTAR [Concomitant]
     Active Substance: SULFAMETHOXAZOLE\TRIMETHOPRIM
     Route: 048
     Dates: start: 20130605, end: 20160411
  94. EDIROL [Concomitant]
     Active Substance: ELDECALCITOL
     Indication: PROPHYLAXIS
     Dosage: 0.75 ?G, ONCE DAILY
     Route: 048
     Dates: start: 20121004, end: 20121204
  95. FEBURIC [Concomitant]
     Active Substance: FEBUXOSTAT
     Indication: PROPHYLAXIS
  96. TACROLIMUS. [Suspect]
     Active Substance: TACROLIMUS
     Route: 048
     Dates: start: 20120904, end: 20120906
  97. PREDNISOLONE. [Suspect]
     Active Substance: PREDNISOLONE
     Route: 048
     Dates: start: 20120904, end: 20120918
  98. PREDNISOLONE. [Suspect]
     Active Substance: PREDNISOLONE
     Route: 048
     Dates: start: 20130116, end: 20130205
  99. PREDNISOLONE. [Suspect]
     Active Substance: PREDNISOLONE
     Route: 048
     Dates: start: 20131211, end: 20140107
  100. PREDNISOLONE. [Suspect]
     Active Substance: PREDNISOLONE
     Route: 048
     Dates: start: 20140618, end: 20140923
  101. PREDNISOLONE. [Suspect]
     Active Substance: PREDNISOLONE
     Route: 048
     Dates: start: 20140924, end: 20141125
  102. PREDNISOLONE SODIUM SUCCINATE [Suspect]
     Active Substance: PREDNISOLONE SODIUM SUCCINATE
     Route: 065
     Dates: start: 20120828, end: 20120903
  103. PERSANTIN [Suspect]
     Active Substance: DIPYRIDAMOLE
     Route: 048
     Dates: start: 20090304, end: 20120715
  104. DIOVAN [Concomitant]
     Active Substance: VALSARTAN
     Indication: LUPUS NEPHRITIS
     Route: 048
     Dates: end: 20120131
  105. HYALEIN [Concomitant]
     Active Substance: HYALURONATE SODIUM
     Indication: SYSTEMIC LUPUS ERYTHEMATOSUS
     Dosage: UNK UNK, UNKNOWN FREQ.
     Route: 047
     Dates: start: 20090218, end: 20110706
  106. BREDININ [Concomitant]
     Active Substance: MIZORIBINE
     Route: 048
     Dates: start: 20120821, end: 20160822
  107. BONOTEO [Concomitant]
     Active Substance: MINODRONIC ACID
     Indication: PROPHYLAXIS
     Route: 048
     Dates: start: 20120321, end: 20120508
  108. PRIMPERAN [Concomitant]
     Active Substance: METOCLOPRAMIDE HYDROCHLORIDE
     Indication: PRODUCT USED FOR UNKNOWN INDICATION
     Route: 065
     Dates: start: 20120716, end: 20120716
  109. VEEN D [Concomitant]
     Active Substance: CALCIUM CHLORIDE\DEXTROSE\POTASSIUM CHLORIDE\SODIUM ACETATE\SODIUM CHLORIDE
     Indication: NUTRITIONAL SUPPLEMENTATION
     Route: 065
     Dates: start: 20120825, end: 20120826
  110. ALBUMINAR [Concomitant]
     Active Substance: ALBUMIN HUMAN
     Indication: LUPUS NEPHRITIS
     Route: 065
     Dates: start: 20120717, end: 20120718
  111. VEEN-F [Concomitant]
     Route: 065
     Dates: start: 20120809, end: 20120809
  112. LASIX [Concomitant]
     Active Substance: FUROSEMIDE
     Route: 065
     Dates: start: 20120810, end: 20120810
  113. LASIX [Concomitant]
     Active Substance: FUROSEMIDE
     Route: 048
     Dates: start: 20120908, end: 20120910
  114. UROMITEXAN [Concomitant]
     Active Substance: MESNA
     Route: 065
     Dates: start: 20120824, end: 20120824
  115. UROMITEXAN [Concomitant]
     Active Substance: MESNA
     Route: 065
     Dates: start: 20120912, end: 20120912
  116. ALDACTONE A [Concomitant]
     Active Substance: SPIRONOLACTONE
     Route: 048
     Dates: start: 20120904, end: 20120904
  117. BAKTAR [Concomitant]
     Active Substance: SULFAMETHOXAZOLE\TRIMETHOPRIM
     Route: 048
     Dates: start: 20121004, end: 20130604
  118. TRANSAMIN [Concomitant]
     Active Substance: TRANEXAMIC ACID
     Indication: RHINITIS ALLERGIC
     Route: 048
     Dates: start: 20111019, end: 20111023
  119. TACROLIMUS. [Suspect]
     Active Substance: TACROLIMUS
     Route: 048
     Dates: start: 20090114, end: 20090217
  120. TACROLIMUS. [Suspect]
     Active Substance: TACROLIMUS
     Route: 048
     Dates: start: 20120321, end: 20120714
  121. PREDNISOLONE. [Suspect]
     Active Substance: PREDNISOLONE
     Route: 048
     Dates: start: 20090709, end: 20091007
  122. PREDNISOLONE. [Suspect]
     Active Substance: PREDNISOLONE
     Route: 048
     Dates: start: 20130410, end: 20131210
  123. DIOVAN [Concomitant]
     Active Substance: VALSARTAN
     Route: 048
     Dates: start: 20120201, end: 20120715
  124. DIOVAN [Concomitant]
     Active Substance: VALSARTAN
     Route: 048
     Dates: start: 20120805, end: 20120807
  125. KAKKON-TO [Concomitant]
     Active Substance: HERBS\ROOTS
     Route: 048
     Dates: start: 20090610, end: 20090616
  126. FERROMIA [Concomitant]
     Active Substance: FERROUS CITRATE
     Indication: IRON DEFICIENCY ANAEMIA
     Route: 048
     Dates: start: 20081203, end: 20101109
  127. BREDININ [Concomitant]
     Active Substance: MIZORIBINE
     Route: 048
     Dates: start: 20120614, end: 20120715
  128. ENDOXAN                            /00021102/ [Concomitant]
     Active Substance: CYCLOPHOSPHAMIDE
     Route: 065
     Dates: start: 20120912, end: 20120912
  129. ALBUMINAR [Concomitant]
     Active Substance: ALBUMIN HUMAN
     Route: 065
     Dates: start: 20120725, end: 20120725
  130. CATABON [Concomitant]
     Active Substance: DOPAMINE HYDROCHLORIDE
     Route: 065
     Dates: start: 20120725, end: 20120726
  131. VENOGLOBULIN [Concomitant]
     Active Substance: HUMAN IMMUNOGLOBULIN G
     Route: 065
     Dates: start: 20120925, end: 20120925
  132. SODIUM FERROUS CITRATE [Concomitant]
     Active Substance: SODIUM FERROUS CITRATE
     Indication: IRON DEFICIENCY ANAEMIA
     Route: 048
     Dates: start: 20160202, end: 20160411
  133. TACROLIMUS. [Suspect]
     Active Substance: TACROLIMUS
     Route: 048
     Dates: start: 20120723, end: 20120727
  134. PREDNISOLONE. [Suspect]
     Active Substance: PREDNISOLONE
     Route: 048
     Dates: start: 20091008, end: 20100803
  135. PREDNISOLONE. [Suspect]
     Active Substance: PREDNISOLONE
     Route: 048
     Dates: start: 20100804, end: 20110111
  136. PREDNISOLONE. [Suspect]
     Active Substance: PREDNISOLONE
     Route: 048
     Dates: start: 20120509, end: 20120715
  137. PREDNISOLONE. [Suspect]
     Active Substance: PREDNISOLONE
     Route: 048
     Dates: start: 20121107, end: 20121204
  138. PREDNISOLONE. [Suspect]
     Active Substance: PREDNISOLONE
     Route: 048
     Dates: start: 20130206, end: 20130409
  139. FOSAMAC [Concomitant]
     Active Substance: ALENDRONATE SODIUM
     Indication: PROPHYLAXIS
     Route: 048
     Dates: end: 20090702
  140. FERROMIA [Concomitant]
     Active Substance: FERROUS CITRATE
     Indication: PROPHYLAXIS
     Route: 048
     Dates: start: 20110921, end: 20120715
  141. BREDININ [Concomitant]
     Active Substance: MIZORIBINE
     Indication: LUPUS NEPHRITIS
     Route: 048
     Dates: start: 20110921, end: 20120613
  142. ENDOXAN                            /00021102/ [Concomitant]
     Active Substance: CYCLOPHOSPHAMIDE
     Route: 065
     Dates: start: 20120824, end: 20120824
  143. PERDIPINE [Concomitant]
     Active Substance: NICARDIPINE HYDROCHLORIDE
     Indication: PRODUCT USED FOR UNKNOWN INDICATION
     Route: 065
     Dates: start: 20120715, end: 20120715
  144. GLYCEREB [Concomitant]
     Indication: SUBARACHNOID HAEMORRHAGE
     Route: 065
     Dates: start: 20120716, end: 20120716
  145. CEFAMEZIN ? [Concomitant]
     Indication: PROPHYLAXIS
     Route: 065
     Dates: start: 20120716, end: 20120718
  146. PHYSIO [Concomitant]
     Indication: PRODUCT USED FOR UNKNOWN INDICATION
     Route: 065
     Dates: start: 20120719, end: 20120719
  147. LASIX [Concomitant]
     Active Substance: FUROSEMIDE
     Route: 065
     Dates: start: 20120725, end: 20120726
  148. LASIX [Concomitant]
     Active Substance: FUROSEMIDE
     Route: 065
     Dates: start: 20120825, end: 20120829
  149. LASIX [Concomitant]
     Active Substance: FUROSEMIDE
     Indication: LUPUS NEPHRITIS
     Dosage: 20-40 MG/?
     Route: 048
     Dates: start: 20120731, end: 20120806
  150. LASIX [Concomitant]
     Active Substance: FUROSEMIDE
     Route: 048
     Dates: start: 20121004, end: 20121016
  151. PANTOSIN [Concomitant]
     Active Substance: PANTETHINE
     Indication: PROPHYLAXIS
     Route: 048
     Dates: start: 20120724, end: 20120801
  152. ASPARA K [Concomitant]
     Active Substance: POTASSIUM ASPARTATE
     Indication: MINERAL SUPPLEMENTATION
     Dosage: UNK UNK, UNKNOWN FREQ.
     Route: 048
     Dates: start: 20120807, end: 20120824
  153. LIPITOR [Concomitant]
     Active Substance: ATORVASTATIN CALCIUM
     Indication: PROPHYLAXIS
  154. AMLODIN [Concomitant]
     Active Substance: AMLODIPINE BESYLATE
     Indication: LUPUS NEPHRITIS
     Route: 048
     Dates: start: 20120808, end: 20120816
  155. ALFAROL [Concomitant]
     Active Substance: ALFACALCIDOL
     Indication: OSTEONECROSIS
     Route: 048
     Dates: start: 20141126
  156. ALDACTONE A [Concomitant]
     Active Substance: SPIRONOLACTONE
     Indication: LUPUS NEPHRITIS
     Route: 048
     Dates: start: 20120820, end: 20120824
  157. SENNOSIDE                          /00571901/ [Concomitant]
     Active Substance: SENNOSIDES A AND B
     Indication: CONSTIPATION PROPHYLAXIS
     Route: 048
     Dates: start: 20120829, end: 20121016
  158. EDIROL [Concomitant]
     Active Substance: ELDECALCITOL
     Indication: OSTEONECROSIS
     Dosage: 0.75 ?G, ONCE DAILY
     Route: 048
     Dates: start: 20130703, end: 20141125
  159. FESIN                              /00023550/ [Concomitant]
     Active Substance: IRON SUCROSE
     Route: 065
     Dates: start: 20130807, end: 20130807
  160. PREDNISOLONE. [Suspect]
     Active Substance: PREDNISOLONE
     Route: 048
     Dates: start: 20090409, end: 20090513
  161. PREDNISOLONE. [Suspect]
     Active Substance: PREDNISOLONE
     Route: 048
     Dates: start: 20090611, end: 20090708
  162. PREDNISOLONE. [Suspect]
     Active Substance: PREDNISOLONE
     Route: 048
     Dates: start: 20120821, end: 20120824
  163. PREDNISOLONE. [Suspect]
     Active Substance: PREDNISOLONE
     Route: 048
     Dates: start: 20120919, end: 20121003
  164. PREDNISOLONE. [Suspect]
     Active Substance: PREDNISOLONE
     Route: 048
     Dates: start: 20140108, end: 20140205
  165. PREDNISOLONE. [Suspect]
     Active Substance: PREDNISOLONE
     Route: 048
     Dates: start: 20150127
  166. METHYLPREDNISOLONE SODIUM SUCCINATE. [Suspect]
     Active Substance: METHYLPREDNISOLONE SODIUM SUCCINATE
     Indication: LUPUS NEPHRITIS
     Route: 065
     Dates: start: 20120509, end: 20120509
  167. PERSANTIN [Suspect]
     Active Substance: DIPYRIDAMOLE
     Indication: LUPUS NEPHRITIS
     Route: 048
     Dates: end: 20090303
  168. FOSAMAC [Concomitant]
     Active Substance: ALENDRONATE SODIUM
     Route: 048
     Dates: start: 20120813, end: 20120924
  169. FLOMOX [Concomitant]
     Active Substance: CEFCAPENE PIVOXIL HYDROCHLORIDE HYDRATE
     Indication: PRODUCT USED FOR UNKNOWN INDICATION
     Route: 048
     Dates: start: 20081105, end: 20081110
  170. BREDININ [Concomitant]
     Active Substance: MIZORIBINE
     Route: 048
     Dates: start: 20120807, end: 20120813
  171. THIATON [Concomitant]
     Active Substance: TIQUIZIUM BROMIDE
     Indication: GASTROENTERITIS
     Route: 048
     Dates: start: 20091104, end: 20091201
  172. ENDOXAN                            /00021102/ [Concomitant]
     Active Substance: CYCLOPHOSPHAMIDE
     Indication: LUPUS NEPHRITIS
     Route: 065
     Dates: start: 20120809, end: 20120809
  173. GASTER [Concomitant]
     Active Substance: FAMOTIDINE
     Indication: PROPHYLAXIS
     Route: 065
     Dates: start: 20120716, end: 20120718
  174. PENTAGIN                           /00052102/ [Concomitant]
     Active Substance: PENTAZOCINE HYDROCHLORIDE
     Indication: PRODUCT USED FOR UNKNOWN INDICATION
     Route: 065
     Dates: start: 20120716, end: 20120716
  175. DORMICUM [Concomitant]
     Active Substance: MIDAZOLAM\MIDAZOLAM HYDROCHLORIDE
     Indication: PRODUCT USED FOR UNKNOWN INDICATION
     Route: 065
     Dates: start: 20120716, end: 20120716
  176. METILON [Concomitant]
     Active Substance: METAMIZOLE SODIUM
     Indication: PRODUCT USED FOR UNKNOWN INDICATION
     Route: 065
     Dates: start: 20120718, end: 20120718
  177. PENTCILLIN [Concomitant]
     Active Substance: PIPERACILLIN SODIUM
     Indication: INFECTION PROPHYLAXIS
     Route: 065
     Dates: start: 20120718, end: 20120719
  178. OMEPRAL                            /00661202/ [Concomitant]
     Indication: PROPHYLAXIS
     Route: 065
     Dates: start: 20120719, end: 20120725
  179. VEEN-F [Concomitant]
     Indication: PRODUCT USED FOR UNKNOWN INDICATION
     Dosage: UNK, UNK, UNKNOWN FREQ.
     Route: 065
     Dates: start: 20120716, end: 20120719
  180. LASIX [Concomitant]
     Active Substance: FUROSEMIDE
     Route: 065
     Dates: start: 20120727, end: 20120727
  181. LASIX [Concomitant]
     Active Substance: FUROSEMIDE
     Route: 065
     Dates: start: 20120729, end: 20120730
  182. LASIX [Concomitant]
     Active Substance: FUROSEMIDE
     Route: 065
     Dates: start: 20120903, end: 20120903
  183. LASIX [Concomitant]
     Active Substance: FUROSEMIDE
     Route: 048
     Dates: start: 20120813, end: 20120814
  184. LASIX [Concomitant]
     Active Substance: FUROSEMIDE
     Route: 048
     Dates: start: 20120820, end: 20120820
  185. LASIX [Concomitant]
     Active Substance: FUROSEMIDE
     Route: 048
     Dates: start: 20120822, end: 20120824
  186. LASIX [Concomitant]
     Active Substance: FUROSEMIDE
     Route: 048
     Dates: start: 20130206, end: 20130702
  187. NEOLAMIN 3B                        /00520001/ [Concomitant]
     Indication: NUTRITIONAL SUPPLEMENTATION
     Route: 065
     Dates: start: 20120725, end: 20120729
  188. BAKTAR [Concomitant]
     Active Substance: SULFAMETHOXAZOLE\TRIMETHOPRIM
     Indication: PROPHYLAXIS
     Route: 048
     Dates: start: 20120824, end: 20121003
  189. TAKEPRON [Concomitant]
     Active Substance: LANSOPRAZOLE
     Indication: PROPHYLAXIS AGAINST GASTROINTESTINAL ULCER
     Route: 048
     Dates: start: 20120828
  190. WYTENS                             /00658402/ [Concomitant]
     Active Substance: GUANABENZ ACETATE
     Indication: LUPUS NEPHRITIS
     Route: 048
     Dates: start: 20120915
  191. FESIN                              /00023550/ [Concomitant]
     Active Substance: IRON SUCROSE
     Indication: IRON DEFICIENCY ANAEMIA
     Route: 065
     Dates: start: 20120728, end: 20120730
  192. ALFACALCIDOL [Concomitant]
     Active Substance: ALFACALCIDOL
     Indication: OSTEONECROSIS
     Route: 065
     Dates: start: 20141126

REACTIONS (14)
  - Rhinitis allergic [Recovered/Resolved]
  - Iron deficiency anaemia [Recovered/Resolved]
  - Hyperlipidaemia [Recovered/Resolved]
  - Blood creatine phosphokinase increased [Recovered/Resolved]
  - Otitis externa [Recovered/Resolved]
  - Menorrhagia [Recovered/Resolved]
  - Nasopharyngitis [Recovered/Resolved]
  - Hyperuricaemia [Recovered/Resolved]
  - Iron deficiency anaemia [Recovered/Resolved]
  - Osteonecrosis [Not Recovered/Not Resolved]
  - Gastroenteritis [Recovered/Resolved]
  - Lupus nephritis [Not Recovered/Not Resolved]
  - Subarachnoid haemorrhage [Recovering/Resolving]
  - Purpura [Recovered/Resolved]

NARRATIVE: CASE EVENT DATE: 20081203
